FAERS Safety Report 9564146 (Version 1)
Quarter: 2013Q3

REPORT INFORMATION
  Report Type: Spontaneous
  Country: US (occurrence: US)
  Receive Date: 20130929
  Receipt Date: 20130929
  Transmission Date: 20140515
  Serious: Yes (Other)
  Sender: FDA-Public Use
  Company Number: US-JNJFOC-20130909574

PATIENT
  Sex: Male

DRUGS (2)
  1. ROGAINE UNSPECIFIED INGREDIENT [Suspect]
     Route: 061
  2. ROGAINE UNSPECIFIED INGREDIENT [Suspect]
     Indication: HAIR GROWTH ABNORMAL
     Route: 061

REACTIONS (2)
  - Skin cancer [Recovered/Resolved]
  - Incorrect drug administration duration [Unknown]
